FAERS Safety Report 13636956 (Version 1)
Quarter: 2017Q2

REPORT INFORMATION
  Report Type: Spontaneous
  Country: TW (occurrence: TW)
  Receive Date: 20170609
  Receipt Date: 20170609
  Transmission Date: 20170830
  Serious: Yes (Other)
  Sender: FDA-Public Use
  Company Number: TW-ALKEM LABORATORIES LIMITED-TW-ALKEM-2017-00302

PATIENT
  Age: 58 Year
  Sex: Female

DRUGS (5)
  1. AMLODIPINE BESYLATE. [Suspect]
     Active Substance: AMLODIPINE BESYLATE
     Indication: HYPERTENSION
     Dosage: UNKNOWN
  2. BISOPROLOL [Suspect]
     Active Substance: BISOPROLOL
     Indication: HYPERTENSION
     Dosage: UNKNOWN
  3. MEPHENOXALONE [Concomitant]
     Active Substance: MEPHENOXALONE
     Indication: SPINAL OSTEOARTHRITIS
     Dosage: UNKNOWN
  4. ALPRAZOLAM. [Suspect]
     Active Substance: ALPRAZOLAM
     Indication: HYPERTENSION
     Dosage: UNKNOWN
  5. ACEMETACIN [Concomitant]
     Active Substance: ACEMETACIN
     Indication: SPINAL OSTEOARTHRITIS
     Dosage: UNKNOWN

REACTIONS (1)
  - Pseudolymphoma [Recovered/Resolved]
